FAERS Safety Report 5454557-2 (Version None)
Quarter: 2007Q3

REPORT INFORMATION
  Report Type: 
  Country: None (occurrence: None)
  Receive Date: 20070917
  Receipt Date: 20070913
  Transmission Date: 20080115
  Serious: Yes (Life-Threatening)
  Sender: FDA-Public Use
  Company Number: TR-ABBOTT-07P-161-0416865-00

PATIENT
  Age: 26 Year
  Sex: Female
  Weight: 50 kg

DRUGS (2)
  1. KLACID MR [Suspect]
     Indication: DRUG USE FOR UNKNOWN INDICATION
     Route: 048
     Dates: start: 20070913, end: 20070913
  2. ACETYLCYSTEINE [Concomitant]
     Indication: CHRONIC SINUSITIS
     Route: 048
     Dates: start: 20070913, end: 20070913

REACTIONS (1)
  - SUICIDE ATTEMPT [None]
